FAERS Safety Report 22338680 (Version 3)
Quarter: 2023Q4

REPORT INFORMATION
  Report Type: Spontaneous
  Country: US (occurrence: US)
  Receive Date: 20230518
  Receipt Date: 20231212
  Transmission Date: 20240110
  Serious: Yes (Other)
  Sender: FDA-Public Use
  Company Number: US-PFIZER INC-2020147203

PATIENT
  Age: 78 Year
  Sex: Female
  Weight: 74.4 kg

DRUGS (6)
  1. IBRANCE [Suspect]
     Active Substance: PALBOCICLIB
     Indication: Breast cancer female
     Dosage: (IBRANCE 125 MG THREE WEEKS ON ONE WEEK OFF)
     Route: 048
     Dates: start: 20160707
  2. IBRANCE [Suspect]
     Active Substance: PALBOCICLIB
     Dosage: 125 MG, TAKE 1 CAPSULE DAILY FOR 21 DAYS, THEN STOP FOR 7 DAYS FOR 28 DAY CYCLE
     Route: 048
     Dates: start: 20200526
  3. XANAX [Concomitant]
     Active Substance: ALPRAZOLAM
     Dosage: 0.5 MG, AS NEEDED
     Route: 048
  4. CLINDAMYCIN HYDROCHLORIDE [Concomitant]
     Active Substance: CLINDAMYCIN HYDROCHLORIDE
     Dosage: APPLY A THIN FILM TWICE DAILY
  5. LETROZOLE [Concomitant]
     Active Substance: LETROZOLE
     Dosage: 2.5 MG, DAILY
     Dates: start: 20160707
  6. AMLODIPINE [Concomitant]
     Active Substance: AMLODIPINE BESYLATE
     Dosage: (TAKE 1 TABLET (0.5 MG TOTAL) BY MOUTH IF NEEDED)

REACTIONS (5)
  - Leukopenia [Unknown]
  - Arthralgia [Unknown]
  - Balance disorder [Unknown]
  - Fatigue [Unknown]
  - Rash [Unknown]
